FAERS Safety Report 9981203 (Version 1)
Quarter: 2014Q1

REPORT INFORMATION
  Report Type: Spontaneous
  Country: DE (occurrence: DE)
  Receive Date: 20140307
  Receipt Date: 20140307
  Transmission Date: 20141002
  Serious: Yes (Hospitalization, Congenital Anomaly, Other)
  Sender: FDA-Public Use
  Company Number: 2014SP001227

PATIENT
  Age: 14 Week
  Sex: Female
  Weight: 4.03 kg

DRUGS (1)
  1. METHOTREXATE [Suspect]
     Indication: PSORIATIC ARTHROPATHY
     Route: 065
     Dates: start: 20120910, end: 20130617

REACTIONS (3)
  - Exposure via father [Unknown]
  - Large for dates baby [Unknown]
  - Deafness congenital [Not Recovered/Not Resolved]
